FAERS Safety Report 20607623 (Version 1)
Quarter: 2022Q1

REPORT INFORMATION
  Report Type: Spontaneous
  Country: IN (occurrence: IN)
  Receive Date: 20220317
  Receipt Date: 20220317
  Transmission Date: 20220423
  Serious: Yes (Death)
  Sender: FDA-Public Use
  Company Number: IN-BAUSCH-BL-2022-006390

PATIENT
  Age: 35 Year
  Sex: Male

DRUGS (1)
  1. PREDNISOLONE [Suspect]
     Active Substance: PREDNISOLONE
     Indication: Coeliac disease
     Route: 065

REACTIONS (3)
  - Disseminated varicella zoster virus infection [Fatal]
  - Varicella zoster pneumonia [Fatal]
  - Acute respiratory distress syndrome [Fatal]
